FAERS Safety Report 7214106-5 (Version None)
Quarter: 2010Q4

REPORT INFORMATION
  Report Type: 
  Country: None (occurrence: None)
  Receive Date: 20101126
  Receipt Date: 20100310
  Transmission Date: 20110411
  Serious: Yes (Other)
  Sender: FDA-Public Use
  Company Number: WAES 1003USA01834

PATIENT
  Age: 58 Year
  Sex: Female
  Weight: 74.8435 kg

DRUGS (1)
  1. FOSAMAX [Suspect]
     Indication: OSTEOPOROSIS
     Dosage: 70 MG/WKY/PO
     Route: 048
     Dates: start: 20020724, end: 20050601

REACTIONS (27)
  - APICAL GRANULOMA [None]
  - ARTHROPATHY [None]
  - DEVICE FAILURE [None]
  - EAR CONGESTION [None]
  - EAR PAIN [None]
  - FACIAL PAIN [None]
  - INTESTINAL POLYP [None]
  - LYMPHADENOPATHY [None]
  - MOUTH HAEMORRHAGE [None]
  - NASOPHARYNGITIS [None]
  - ORAL DISORDER [None]
  - OSTEONECROSIS OF JAW [None]
  - OSTEOPOROSIS [None]
  - PAIN IN EXTREMITY [None]
  - PAIN IN JAW [None]
  - PERIODONTITIS [None]
  - PULPITIS DENTAL [None]
  - RESPIRATORY DISORDER [None]
  - RESPIRATORY TRACT INFECTION [None]
  - SINUS DISORDER [None]
  - TOOTH ABSCESS [None]
  - TOOTH DISORDER [None]
  - TOOTH FRACTURE [None]
  - TOOTH LOSS [None]
  - TOOTHACHE [None]
  - TREATMENT NONCOMPLIANCE [None]
  - URINARY TRACT INFECTION [None]
